FAERS Safety Report 6919674-6 (Version None)
Quarter: 2010Q3

REPORT INFORMATION
  Report Type: 
  Country: None (occurrence: None)
  Receive Date: 20100811
  Receipt Date: 20100809
  Transmission Date: 20110219
  Serious: Yes (Life-Threatening, Hospitalization, Other)
  Sender: FDA-Public Use
  Company Number: US-ROXANE LABORATORIES, INC.-2010-RO-00993RO

PATIENT
  Age: 74 Year
  Sex: Female

DRUGS (11)
  1. RISPERIDONE [Suspect]
     Indication: ABNORMAL BEHAVIOUR
     Dosage: 0.0156 MG
  2. RISPERIDONE [Suspect]
     Dosage: 1 MG
  3. CITALOPRAM HYDROBROMIDE [Suspect]
     Indication: DEPRESSION
     Dosage: 40 MG
  4. TRIMETHOPRIM + SULFAMETHOXAZOLE [Suspect]
     Indication: URINARY TRACT INFECTION
  5. LEVOTHYROXINE [Suspect]
     Indication: HYPOTHYROIDISM
     Dosage: 150 MCG
  6. MEMANTINE [Suspect]
     Indication: DEMENTIA ALZHEIMER'S TYPE
     Dosage: 20 MG
  7. DONEPEZIL HCL [Suspect]
     Indication: DEMENTIA ALZHEIMER'S TYPE
     Dosage: 10 MG
  8. ATENOLOL [Suspect]
     Indication: HYPERTENSION
     Dosage: 12.5 MG
  9. ASPIRIN [Suspect]
     Indication: CARDIOVASCULAR EVENT PROPHYLAXIS
  10. PROCHLORPERAZINE [Suspect]
     Indication: NAUSEA
     Dosage: 25 MG
     Route: 054
  11. PROCHLORPERAZINE [Suspect]
     Indication: VOMITING

REACTIONS (3)
  - ABNORMAL BEHAVIOUR [None]
  - RENAL FAILURE ACUTE [None]
  - SEROTONIN SYNDROME [None]
